FAERS Safety Report 8942122 (Version 1)
Quarter: 2012Q4

REPORT INFORMATION
  Report Type: 
  Country: FR (occurrence: FR)
  Receive Date: 20121130
  Receipt Date: 20121130
  Transmission Date: 20130627
  Serious: Yes (Hospitalization)
  Sender: FDA-Public Use
  Company Number: FR-GLAXOSMITHKLINE-B0848061A

PATIENT
  Sex: Male

DRUGS (2)
  1. ALKERAN [Suspect]
     Indication: AMYLOIDOSIS
     Route: 065
  2. DEXAMETHASONE [Concomitant]
     Indication: AMYLOIDOSIS

REACTIONS (1)
  - Interstitial lung disease [Recovering/Resolving]
